FAERS Safety Report 24616185 (Version 1)
Quarter: 2024Q4

REPORT INFORMATION
  Report Type: Spontaneous
  Country: CN (occurrence: CN)
  Receive Date: 20241113
  Receipt Date: 20241113
  Transmission Date: 20250114
  Serious: Yes (Life-Threatening)
  Sender: NOVO NORDISK
  Company Number: None

PATIENT
  Age: 36 Year
  Sex: Male
  Weight: 106 kg

DRUGS (3)
  1. OZEMPIC [Suspect]
     Active Substance: SEMAGLUTIDE
     Dosage: 1 MG, QW
     Route: 030
  2. OZEMPIC [Suspect]
     Active Substance: SEMAGLUTIDE
     Dosage: 0.5 MG, QW
     Route: 030
     Dates: start: 20241021
  3. OZEMPIC [Suspect]
     Active Substance: SEMAGLUTIDE
     Indication: Obesity
     Dosage: 0.25 MG, QW
     Route: 030
     Dates: start: 20241014, end: 20241014

REACTIONS (3)
  - Hypoglycaemia [Recovering/Resolving]
  - Product use in unapproved indication [Unknown]
  - Incorrect route of product administration [Unknown]

NARRATIVE: CASE EVENT DATE: 20241014
